FAERS Safety Report 9424970 (Version 4)
Quarter: 2013Q4

REPORT INFORMATION
  Report Type: Spontaneous
  Country: US (occurrence: US)
  Receive Date: 20130729
  Receipt Date: 20131021
  Transmission Date: 20140711
  Serious: No
  Sender: FDA-Public Use
  Company Number: US-PFIZER INC-2013218687

PATIENT
  Age: 64 Year
  Sex: Male

DRUGS (2)
  1. INLYTA [Suspect]
     Indication: RENAL CANCER
     Dosage: 5 MG, 2X/DAY
     Dates: start: 20130617
  2. INLYTA [Suspect]
     Dosage: 5 MG, 2X/DAY

REACTIONS (5)
  - Disease progression [Unknown]
  - Renal cancer [Unknown]
  - Fatigue [Unknown]
  - Dysphonia [Unknown]
  - Malaise [Unknown]
